FAERS Safety Report 9371420 (Version 1)
Quarter: 2013Q2

REPORT INFORMATION
  Report Type: Spontaneous
  Country: US (occurrence: None)
  Receive Date: 20130626
  Receipt Date: 20130626
  Transmission Date: 20140414
  Serious: No
  Sender: FDA-Public Use
  Company Number: None

PATIENT
  Age: 61 Year
  Sex: Female

DRUGS (6)
  1. AMPYRA [Suspect]
     Route: 048
  2. CODEINE SULF [Concomitant]
  3. GABAPENTIN [Concomitant]
  4. FLUOXETINE [Concomitant]
  5. LORAZEPAM [Concomitant]
  6. TIZANIDINE [Concomitant]

REACTIONS (2)
  - Oral discomfort [None]
  - Glossodynia [None]
